FAERS Safety Report 8309061-0 (Version None)
Quarter: 2012Q2

REPORT INFORMATION
  Report Type: 
  Country: None (occurrence: None)
  Receive Date: 20120424
  Receipt Date: 20120413
  Transmission Date: 20120825
  Serious: Yes (Other)
  Sender: FDA-Public Use
  Company Number: PL-ROCHE-1059910

PATIENT
  Age: 51 Year
  Sex: Male

DRUGS (1)
  1. RITUXIMAB [Suspect]
     Indication: NON-HODGKIN'S LYMPHOMA

REACTIONS (5)
  - NEOPLASM [None]
  - SUBCUTANEOUS ABSCESS [None]
  - LYMPHOEDEMA [None]
  - SEPTIC SHOCK [None]
  - LYMPHADENOPATHY [None]
